FAERS Safety Report 10774556 (Version 1)
Quarter: 2015Q1

REPORT INFORMATION
  Report Type: Spontaneous
  Country: AU (occurrence: None)
  Receive Date: 20150129
  Receipt Date: 20150129
  Transmission Date: 20150721
  Serious: Yes (Hospitalization)
  Sender: FDA-Public Use
  Company Number: GAM-013-15-AU

PATIENT
  Age: 72 Year
  Sex: Female

DRUGS (6)
  1. ENOXAPARIN [Concomitant]
     Active Substance: ENOXAPARIN
  2. IDELALISIB [Concomitant]
     Active Substance: IDELALISIB
  3. OCTAGAM IMMUNE GLOBULIN (HUMAN) [Suspect]
     Active Substance: HUMAN IMMUNOGLOBULIN G
     Indication: HYPOGAMMAGLOBULINAEMIA
     Dosage: 30 G (1X 1 / TOTAL), INTRAVENOUS (NOT OTHERWISE SPECIFIED)??BATCH #B425B844?
     Route: 042
     Dates: start: 20150108, end: 20150108
  4. PLACEBO [Concomitant]
     Active Substance: UNSPECIFIED INGREDIENT
  5. RITUXIMAB [Concomitant]
     Active Substance: RITUXIMAB
  6. BENDAMUSTINE [Concomitant]
     Active Substance: BENDAMUSTINE

REACTIONS (2)
  - Herpes zoster [None]
  - Suspected transmission of an infectious agent via product [None]
